FAERS Safety Report 5327174-2 (Version None)
Quarter: 2007Q2

REPORT INFORMATION
  Report Type: 
  Country: None (occurrence: None)
  Receive Date: 20070511
  Receipt Date: 20070501
  Transmission Date: 20071010
  Serious: No
  Sender: FDA-Public Use
  Company Number: 233173K07USA

PATIENT
  Age: 39 Year
  Sex: Female

DRUGS (6)
  1. REBIF [Suspect]
     Indication: MULTIPLE SCLEROSIS
     Dosage: SEE IMAGE
     Route: 058
     Dates: start: 20070104, end: 20070201
  2. REBIF [Suspect]
     Indication: MULTIPLE SCLEROSIS
     Dosage: SEE IMAGE
     Route: 058
     Dates: start: 20070201, end: 20070416
  3. EFFEXOR [Suspect]
     Dates: start: 20070413, end: 20070415
  4. EFFEXOR [Suspect]
     Dates: start: 20070428
  5. LORAZEPAM [Concomitant]
  6. NADOLOL [Concomitant]

REACTIONS (7)
  - DYSPNOEA [None]
  - FEELING JITTERY [None]
  - FORMICATION [None]
  - HEADACHE [None]
  - HYPERSENSITIVITY [None]
  - KIDNEY INFECTION [None]
  - NAUSEA [None]
